FAERS Safety Report 5771918-2 (Version None)
Quarter: 2008Q2

REPORT INFORMATION
  Report Type: 
  Country: None (occurrence: None)
  Receive Date: 20080613
  Receipt Date: 20080610
  Transmission Date: 20081010
  Serious: Yes (Death, Hospitalization)
  Sender: FDA-Public Use
  Company Number: BR-ABBOTT-08P-020-0456643-00

PATIENT
  Sex: Male
  Weight: 70 kg

DRUGS (3)
  1. RITONAVIR SOFT GELATIN CAPSULES [Suspect]
     Indication: HIV INFECTION
     Route: 048
  2. TMC-125(PLACEBO) [Concomitant]
     Indication: HIV INFECTION
     Route: 048
  3. TMC-114 [Concomitant]
     Indication: HIV INFECTION
     Route: 048

REACTIONS (2)
  - CEREBRAL TOXOPLASMOSIS [None]
  - LUNG NEOPLASM [None]
